FAERS Safety Report 19426050 (Version 1)
Quarter: 2021Q2

REPORT INFORMATION
  Report Type: Spontaneous
  Country: ES (occurrence: ES)
  Receive Date: 20210616
  Receipt Date: 20210616
  Transmission Date: 20210717
  Serious: Yes (Other)
  Sender: FDA-Public Use
  Company Number: ES-009507513-2106ESP003831

PATIENT
  Age: 26 Year
  Sex: Female

DRUGS (5)
  1. CISPLATIN. [Suspect]
     Active Substance: CISPLATIN
     Indication: TONSIL CANCER
     Dosage: 100 MILLIGRAM/SQ. METER
     Dates: start: 2020, end: 2020
  2. 5 FU [Suspect]
     Active Substance: FLUOROURACIL
     Indication: TONSIL CANCER
     Dosage: 1000 MILLIGRAM/SQ. METER
     Dates: start: 2020, end: 2020
  3. PEMBROLIZUMAB. [Suspect]
     Active Substance: PEMBROLIZUMAB
     Dosage: 4 MILLIGRAM/KILOGRAM, EVERY 42 DAYS
     Dates: start: 2021
  4. PEMBROLIZUMAB. [Suspect]
     Active Substance: PEMBROLIZUMAB
     Indication: TONSIL CANCER
     Dosage: 200 MILLIGRAM
     Dates: start: 2020, end: 2021
  5. G?CSF [Suspect]
     Active Substance: GRANULOCYTE COLONY-STIMULATING FACTOR NOS
     Indication: TONSIL CANCER
     Dosage: UNK
     Dates: start: 2020, end: 2020

REACTIONS (4)
  - Malignant neoplasm progression [Unknown]
  - Neutropenia [Unknown]
  - Product use issue [Unknown]
  - Febrile neutropenia [Unknown]

NARRATIVE: CASE EVENT DATE: 2020
